FAERS Safety Report 12537864 (Version 1)
Quarter: 2016Q3

REPORT INFORMATION
  Report Type: Spontaneous
  Country: US (occurrence: US)
  Receive Date: 20160707
  Receipt Date: 20160707
  Transmission Date: 20161109
  Serious: Yes (Hospitalization, Other)
  Sender: FDA-Public Use
  Company Number: US-DSJP-DSU-2015-120649

PATIENT
  Age: 36 Year
  Sex: Male
  Weight: 117.91 kg

DRUGS (3)
  1. BENICAR HCT [Suspect]
     Active Substance: HYDROCHLOROTHIAZIDE\OLMESARTAN MEDOXOMIL
     Dosage: 20/12.5 MG, QD
  2. LABETALOL [Concomitant]
     Active Substance: LABETALOL\LABETALOL HYDROCHLORIDE
     Indication: PRODUCT USED FOR UNKNOWN INDICATION
     Dosage: UNK
     Dates: start: 20131002, end: 20141017
  3. BENICAR HCT [Suspect]
     Active Substance: HYDROCHLOROTHIAZIDE\OLMESARTAN MEDOXOMIL
     Indication: HYPERTENSION
     Dosage: 40/25 MG, QD
     Dates: start: 2005, end: 20130802

REACTIONS (8)
  - Renal failure [Unknown]
  - Irritable bowel syndrome [Unknown]
  - Blood urine present [Unknown]
  - Nephrolithiasis [Unknown]
  - Hydronephrosis [Unknown]
  - Renal colic [Unknown]
  - Malabsorption [Not Recovered/Not Resolved]
  - Micturition urgency [Unknown]

NARRATIVE: CASE EVENT DATE: 2005
